FAERS Safety Report 6255680-5 (Version None)
Quarter: 2009Q3

REPORT INFORMATION
  Report Type: 
  Country: None (occurrence: None)
  Receive Date: 20090701
  Receipt Date: 20090625
  Transmission Date: 20100115
  Serious: Yes (Life-Threatening, Hospitalization, Other)
  Sender: FDA-Public Use
  Company Number: CLOF-10606

PATIENT
  Age: 19 Year
  Sex: Male
  Weight: 74.6 kg

DRUGS (25)
  1. CLOLAR [Suspect]
     Indication: ACUTE MYELOID LEUKAEMIA
     Dosage: 40 MG/M2, QDX5, INTRAVENOUS
     Route: 042
     Dates: start: 20070628, end: 20070702
  2. CYTARABINE [Suspect]
     Indication: ACUTE MYELOID LEUKAEMIA
     Dosage: 70 MG, ONCE, INTRATHECAL, 1000 MG/M2, QOD, INTRAVENOUS
     Route: 037
     Dates: start: 20070625, end: 20070625
  3. CYTARABINE [Suspect]
     Indication: ACUTE MYELOID LEUKAEMIA
     Dosage: 70 MG, ONCE, INTRATHECAL, 1000 MG/M2, QOD, INTRAVENOUS
     Route: 037
     Dates: start: 20070627, end: 20070702
  4. ACETAMINOPHEN [Concomitant]
  5. ACYCLOVIR [Concomitant]
  6. CEPHALEXIN [Concomitant]
  7. DEXAMETHASONE TAB [Concomitant]
  8. DIPHENHYDRAMINE HCL [Concomitant]
  9. DRONABINOL [Concomitant]
  10. FLUCONAZOLE [Concomitant]
  11. HEPARIN [Concomitant]
  12. HYDROXYPROPYL ME (HYPROMELLOSE) [Concomitant]
  13. HYDROXYZINE [Concomitant]
  14. LANSOPRAZOLE [Concomitant]
  15. LORAZEPAM [Concomitant]
  16. MAGNESIUM (MAGNESIUM HYDROXIDE) [Concomitant]
  17. MEPERIDINE HCL [Concomitant]
  18. METOCLOPRAMIDE [Concomitant]
  19. MORPHINE [Concomitant]
  20. MULTIVITAMIN [Concomitant]
  21. OCULAR LUBRICANT (HYPROMELLOSE) [Concomitant]
  22. ONDANSETRON HCL [Concomitant]
  23. OXYCODONE HCL [Concomitant]
  24. SULFAMETHOXAZOLE W/TRIMETHOPRIM (SULFAMETHOXAZOLE, TRIMETHOPRIM) [Concomitant]
  25. TRAZODONE HCL [Concomitant]

REACTIONS (9)
  - BLOOD CULTURE POSITIVE [None]
  - BLOOD DISORDER [None]
  - CORYNEBACTERIUM INFECTION [None]
  - FUNGAL INFECTION [None]
  - HYPOKALAEMIA [None]
  - INFECTION [None]
  - LUNG INFILTRATION [None]
  - NEUTROPHIL COUNT ABNORMAL [None]
  - STREPTOCOCCAL INFECTION [None]
